FAERS Safety Report 9382112 (Version 1)
Quarter: 2013Q3

REPORT INFORMATION
  Report Type: Spontaneous
  Country: US (occurrence: None)
  Receive Date: 20130702
  Receipt Date: 20130702
  Transmission Date: 20140515
  Serious: Yes (Death, Disabling)
  Sender: FDA-Public Use
  Company Number: None

PATIENT
  Age: 26 Year
  Sex: Female
  Weight: 54.43 kg

DRUGS (1)
  1. LUPRON DEPOT [Suspect]
     Indication: ENDOMETRIOSIS
     Dosage: ONCE/MO X 6MO
     Route: 030
     Dates: start: 199212, end: 199305

REACTIONS (15)
  - Marital problem [None]
  - Homicide [None]
  - Hot flush [None]
  - Arthralgia [None]
  - Heart rate irregular [None]
  - Depression [None]
  - Amnesia [None]
  - Headache [None]
  - Hyperhidrosis [None]
  - Feeling hot [None]
  - Back pain [None]
  - Eye pain [None]
  - Chest pain [None]
  - Hypoaesthesia [None]
  - Abnormal behaviour [None]
